FAERS Safety Report 4611662-8 (Version None)
Quarter: 2005Q2

REPORT INFORMATION
  Report Type: 
  Country: None (occurrence: None)
  Receive Date: 20050311
  Receipt Date: 20050105
  Transmission Date: 20051028
  Serious: No
  Sender: FDA-Public Use
  Company Number: 2005-BP-00386BP

PATIENT
  Sex: Female

DRUGS (5)
  1. SPIRIVA [Suspect]
     Indication: CHRONIC OBSTRUCTIVE PULMONARY DISEASE
     Dosage: 18 MCG (18 MCG), IH
     Route: 055
     Dates: start: 20040101
  2. ADVAIR DISKUS 100/50 [Suspect]
     Dosage: SEE TEXT (SEE TEXT, 1 PUFF 250 BID), IH
     Route: 055
  3. ALBUTEROL [Concomitant]
  4. ACCUPRIL [Concomitant]
  5. SINGULAIR (MONTELUKAST) [Concomitant]

REACTIONS (3)
  - DRY MOUTH [None]
  - LARYNGITIS [None]
  - NASAL DRYNESS [None]
